FAERS Safety Report 9084297 (Version 1)
Quarter: 2013Q1

REPORT INFORMATION
  Report Type: Report from Study
  Country: US (occurrence: US)
  Receive Date: 20130130
  Receipt Date: 20130130
  Transmission Date: 20140127
  Serious: No
  Sender: FDA-Public Use
  Company Number: US-ABBOTT-12P-163-0953393-00

PATIENT
  Age: 73 Year
  Sex: Female

DRUGS (5)
  1. HUMIRA 40 MG/0.8 ML PEN [Suspect]
     Indication: CROHN^S DISEASE
     Route: 050
     Dates: start: 2008
  2. RYTHMOL [Concomitant]
     Indication: ATRIAL FIBRILLATION
  3. TOPROL [Concomitant]
     Indication: HYPERTENSION
     Dosage: 25MG DAILY
  4. ZEMPLAR [Concomitant]
     Indication: VITAMIN D
     Dosage: 1MCG DAILY
  5. VITAMIN B12 [Concomitant]
     Indication: VITAMIN SUPPLEMENTATION

REACTIONS (4)
  - Nephrolithiasis [Recovered/Resolved]
  - Crohn^s disease [Not Recovered/Not Resolved]
  - Back pain [Recovering/Resolving]
  - Herpes zoster [Recovering/Resolving]
